FAERS Safety Report 4904986-8 (Version None)
Quarter: 2006Q1

REPORT INFORMATION
  Report Type: 
  Country: None (occurrence: None)
  Receive Date: 20060203
  Receipt Date: 20060124
  Transmission Date: 20060701
  Serious: Yes (Other)
  Sender: FDA-Public Use
  Company Number: 2006014209

PATIENT
  Sex: 0

DRUGS (2)
  1. HALCION [Suspect]
     Indication: ILL-DEFINED DISORDER
     Dosage: ORAL
     Route: 048
  2. ALCOHOL (ETHANOL) [Suspect]
     Indication: ILL-DEFINED DISORDER

REACTIONS (4)
  - ALCOHOL USE [None]
  - DELIRIUM [None]
  - HYPOGLYCAEMIA [None]
  - LOSS OF CONSCIOUSNESS [None]
